FAERS Safety Report 19469430 (Version 1)
Quarter: 2021Q2

REPORT INFORMATION
  Report Type: Spontaneous
  Country: CN (occurrence: CN)
  Receive Date: 20210629
  Receipt Date: 20210629
  Transmission Date: 20210717
  Serious: Yes (Hospitalization, Other)
  Sender: FDA-Public Use
  Company Number: CN-SA-2021SA202623

PATIENT
  Sex: Male
  Weight: 59 kg

DRUGS (7)
  1. APROVEL [Suspect]
     Active Substance: IRBESARTAN
     Dosage: 1 DF, QOD
     Route: 065
  2. BETALOC [METOPROLOL TARTRATE] [Concomitant]
     Active Substance: METOPROLOL TARTRATE
     Indication: PRODUCT USED FOR UNKNOWN INDICATION
     Dosage: 0.5 DF
     Route: 065
  3. EMPAGLIFLOZIN [Concomitant]
     Active Substance: EMPAGLIFLOZIN
     Dosage: UNK
     Route: 065
  4. LIRAGLUTIDE [Concomitant]
     Active Substance: LIRAGLUTIDE
     Dosage: UNK
     Route: 065
  5. APROVEL [Suspect]
     Active Substance: IRBESARTAN
     Indication: HYPERTENSION
     Dosage: 1 DF, QD
     Route: 065
  6. APROVEL [Suspect]
     Active Substance: IRBESARTAN
     Dosage: 1 DF, BID
     Route: 065
  7. BETALOC [METOPROLOL TARTRATE] [Concomitant]
     Active Substance: METOPROLOL TARTRATE
     Dosage: WAS REDUCED TO ONE?FOURTH
     Route: 065

REACTIONS (8)
  - Weight decreased [Unknown]
  - Heart rate increased [Unknown]
  - Hypotension [Unknown]
  - Off label use [Unknown]
  - Diabetes mellitus [Unknown]
  - Blood pressure fluctuation [Unknown]
  - Intentional product misuse [Unknown]
  - Blood pressure increased [Unknown]

NARRATIVE: CASE EVENT DATE: 2020
